FAERS Safety Report 15509689 (Version 1)
Quarter: 2018Q4

REPORT INFORMATION
  Report Type: Spontaneous
  Country: ES (occurrence: ES)
  Receive Date: 20181016
  Receipt Date: 20181016
  Transmission Date: 20190205
  Serious: Yes (Life-Threatening, Hospitalization, Other)
  Sender: FDA-Public Use
  Company Number: ES-SA-2018SA282357

PATIENT
  Sex: Female
  Weight: 86 kg

DRUGS (1)
  1. LANTUS [Suspect]
     Active Substance: INSULIN GLARGINE
     Indication: TYPE 2 DIABETES MELLITUS
     Dosage: UNK
     Route: 058
     Dates: start: 20180927

REACTIONS (9)
  - Varicose vein [Unknown]
  - Extra dose administered [Recovered/Resolved]
  - Angiopathy [Unknown]
  - Hyperkalaemia [Unknown]
  - Peritonitis [Recovered/Resolved]
  - Thirst [Unknown]
  - Hypertension [Unknown]
  - Joint injury [Recovering/Resolving]
  - Renal failure [Unknown]
